FAERS Safety Report 4688439-0 (Version None)
Quarter: 2005Q2

REPORT INFORMATION
  Report Type: 
  Country: None (occurrence: None)
  Receive Date: 20050609
  Receipt Date: 20050314
  Transmission Date: 20051028
  Serious: Yes (Other)
  Sender: FDA-Public Use
  Company Number: 2005019025

PATIENT
  Age: 53 Year
  Sex: Male
  Weight: 83 kg

DRUGS (1)
  1. XALATAN [Suspect]
     Indication: OCULAR HYPERTENSION
     Dosage: 4 DROP (1 DROP, 2 IN 2 D), OPHTHALMIC
     Route: 047
     Dates: start: 20040624

REACTIONS (5)
  - CYST [None]
  - DRUG INEFFECTIVE [None]
  - INFLAMMATION [None]
  - OPEN ANGLE GLAUCOMA [None]
  - POST PROCEDURAL COMPLICATION [None]
